FAERS Safety Report 4871847-2 (Version None)
Quarter: 2006Q1

REPORT INFORMATION
  Report Type: 
  Country: None (occurrence: None)
  Receive Date: 20060104
  Receipt Date: 20050914
  Transmission Date: 20060701
  Serious: Yes (Hospitalization, Disabling)
  Sender: FDA-Public Use
  Company Number: US-MERCK-0509USA02225

PATIENT
  Age: 44 Year
  Sex: Female
  Weight: 66 kg

DRUGS (9)
  1. VIOXX [Suspect]
     Indication: FIBROMYALGIA
     Route: 048
     Dates: start: 19990101, end: 20040901
  2. VIOXX [Suspect]
     Indication: CHRONIC FATIGUE SYNDROME
     Route: 048
     Dates: start: 19990101, end: 20040901
  3. NAPROXEN [Concomitant]
     Route: 048
     Dates: start: 19990101
  4. OXYCODONE [Concomitant]
     Route: 048
  5. VICODIN [Concomitant]
     Indication: PAIN
     Route: 048
  6. CORTICOSTEROIDS (UNSPECIFIED) [Concomitant]
     Route: 051
  7. LOPRESSOR [Concomitant]
     Indication: HYPERTENSION
     Route: 048
     Dates: start: 19990801, end: 20020101
  8. HYDROCHLOROTHIAZIDE [Concomitant]
     Indication: HYPERTENSION
     Route: 048
     Dates: start: 19990101, end: 20030923
  9. ASPIRIN [Concomitant]
     Route: 048
     Dates: start: 19990101

REACTIONS (37)
  - ALOPECIA [None]
  - ANGINA PECTORIS [None]
  - ANXIETY [None]
  - ARTERIAL RUPTURE [None]
  - ARTHROPATHY [None]
  - BLOOD PRESSURE FLUCTUATION [None]
  - CONFUSIONAL STATE [None]
  - DEHYDRATION [None]
  - DEPRESSION [None]
  - DIARRHOEA [None]
  - DISLOCATION OF VERTEBRA [None]
  - DIZZINESS [None]
  - DYSPEPSIA [None]
  - HAEMATOCHEZIA [None]
  - HEADACHE [None]
  - HEART RATE INCREASED [None]
  - HEART RATE IRREGULAR [None]
  - INFLAMMATION [None]
  - INTESTINAL OBSTRUCTION [None]
  - LARGE INTESTINE PERFORATION [None]
  - MUSCULOSKELETAL STIFFNESS [None]
  - NAUSEA [None]
  - OBESITY [None]
  - OEDEMA PERIPHERAL [None]
  - PALPITATIONS [None]
  - PARAESTHESIA [None]
  - PLANTAR FASCIITIS [None]
  - POST-TRAUMATIC STRESS DISORDER [None]
  - RENAL DISORDER [None]
  - RESPIRATORY TRACT INFECTION [None]
  - SLEEP APNOEA SYNDROME [None]
  - SLEEP DISORDER [None]
  - STOMACH DISCOMFORT [None]
  - THROMBOSIS [None]
  - URINARY TRACT INFECTION [None]
  - VASCULAR RUPTURE [None]
  - VOMITING [None]
